FAERS Safety Report 7068511-0 (Version None)
Quarter: 2010Q4

REPORT INFORMATION
  Report Type: 
  Country: None (occurrence: None)
  Receive Date: 20101028
  Receipt Date: 20101018
  Transmission Date: 20110411
  Serious: Yes (Other)
  Sender: FDA-Public Use
  Company Number: CN-WYE-H18343910

PATIENT
  Age: 57 Year
  Sex: Male

DRUGS (2)
  1. CORDARONE [Suspect]
     Indication: VENTRICULAR EXTRASYSTOLES
     Dosage: 200 MG (FREQUENCY UNSPECIFIED)
     Route: 048
  2. PROPAFENONE HCL [Concomitant]

REACTIONS (5)
  - AGGRESSION [None]
  - AGITATION [None]
  - HALLUCINATION [None]
  - INSOMNIA [None]
  - MANIA [None]
